FAERS Safety Report 9866384 (Version 1)
Quarter: 2014Q1

REPORT INFORMATION
  Report Type: Spontaneous
  Country: ES (occurrence: ES)
  Receive Date: 20140204
  Receipt Date: 20140204
  Transmission Date: 20141002
  Serious: Yes (Death)
  Sender: FDA-Public Use
  Company Number: ES-MERCK-1401ESP014464

PATIENT
  Age: 65 Year
  Sex: Male

DRUGS (4)
  1. PEGINTRON [Suspect]
     Indication: CHRONIC HEPATITIS C
     Dosage: 150 MCG, SEMANAL
     Route: 058
     Dates: start: 20130430, end: 20131230
  2. RIBAVIRIN [Suspect]
     Indication: CHRONIC HEPATITIS C
     Dosage: 600 MG, 2 VECES AL DIA
     Route: 048
     Dates: start: 20130430, end: 20140110
  3. TELAPREVIR [Suspect]
     Indication: CHRONIC HEPATITIS C
     Dosage: 1125 MG, 2 VECES AL DIA
     Route: 048
     Dates: start: 20130430, end: 20130723
  4. CARDURAN NEO [Suspect]
     Indication: HYPERTENSION
     Dosage: 8 MG, 1 VEZ AL DIA
     Route: 048
     Dates: start: 2013

REACTIONS (1)
  - Acute myocardial infarction [Fatal]
